FAERS Safety Report 4269599-2 (Version None)
Quarter: 2004Q1

REPORT INFORMATION
  Report Type: 
  Country: None (occurrence: None)
  Receive Date: 20040112
  Receipt Date: 20040112
  Transmission Date: 20041129
  Serious: Yes (Hospitalization)
  Sender: FDA-Public Use
  Company Number: None

PATIENT
  Age: 72 Year
  Sex: Male

DRUGS (9)
  1. METOPROLOL [Suspect]
     Indication: HYPERTENSION
     Dosage: 25MG QD
     Dates: start: 20020101
  2. DILTIAZEM [Suspect]
     Indication: HYPERTENSION
     Dosage: 360MG QAM
     Dates: start: 19950301
  3. NITROGLYCERIN [Concomitant]
  4. CIMETIDINE HCL [Concomitant]
  5. ALBUTEROL [Concomitant]
  6. TYLENOL W/ CODEINE NO. 3 [Concomitant]
  7. FUROSEMIDE [Concomitant]
  8. IPRATROPIUM BROMIDE [Concomitant]
  9. ISOSORBIDE [Concomitant]

REACTIONS (1)
  - BRADYCARDIA [None]
